FAERS Safety Report 16886622 (Version 3)
Quarter: 2019Q4

REPORT INFORMATION
  Report Type: Spontaneous
  Country: US (occurrence: US)
  Receive Date: 20191004
  Receipt Date: 20191223
  Transmission Date: 20200122
  Serious: No
  Sender: FDA-Public Use
  Company Number: US-STRONGBRIDGE BIOPHARMA-2019-STR-000236

PATIENT
  Age: 64 Year
  Sex: Female

DRUGS (4)
  1. KEVEYIS [Suspect]
     Active Substance: DICHLORPHENAMIDE
     Indication: FAMILIAL PERIODIC PARALYSIS
     Dosage: 75 MG, QD
     Route: 048
  2. KEVEYIS [Suspect]
     Active Substance: DICHLORPHENAMIDE
     Dosage: 50 MG, QD
     Route: 048
     Dates: start: 20190914
  3. KEVEYIS [Suspect]
     Active Substance: DICHLORPHENAMIDE
     Dosage: 50 MG, BID
     Route: 048
     Dates: start: 20190917
  4. KEVEYIS [Suspect]
     Active Substance: DICHLORPHENAMIDE
     Dosage: 25 MG, BID
     Route: 048
     Dates: start: 20190928

REACTIONS (10)
  - Weight decreased [Not Recovered/Not Resolved]
  - Abdominal discomfort [Recovering/Resolving]
  - Taste disorder [Recovering/Resolving]
  - Dysgeusia [Recovering/Resolving]
  - Paraesthesia [Recovering/Resolving]
  - Burning sensation [Recovering/Resolving]
  - Condition aggravated [Not Recovered/Not Resolved]
  - Paraesthesia [Unknown]
  - Hypoaesthesia oral [Recovering/Resolving]
  - Arthritis [Unknown]

NARRATIVE: CASE EVENT DATE: 20190913
